FAERS Safety Report 6608483-3 (Version None)
Quarter: 2010Q1

REPORT INFORMATION
  Report Type: 
  Country: None (occurrence: None)
  Receive Date: 20100212
  Receipt Date: 20091218
  Transmission Date: 20100710
  Serious: No
  Sender: FDA-Public Use
  Company Number: 1000010882

PATIENT
  Age: 55 Year
  Sex: Female

DRUGS (3)
  1. SAVELLA [Suspect]
     Indication: FIBROMYALGIA
     Dosage: ORAL
     Route: 048
     Dates: start: 20091101
  2. LYRICA [Concomitant]
  3. ABILIFY [Concomitant]

REACTIONS (2)
  - NAUSEA [None]
  - PRURITUS [None]
